FAERS Safety Report 9719139 (Version 5)
Quarter: 2014Q2

REPORT INFORMATION
  Report Type: Spontaneous
  Country: AT (occurrence: AT)
  Receive Date: 20131127
  Receipt Date: 20140418
  Transmission Date: 20141212
  Serious: Yes (Other)
  Sender: FDA-Public Use
  Company Number: PHHY2013AT135688

PATIENT
  Age: 17 Year
  Sex: Female

DRUGS (7)
  1. QUETIAPINE SANDOZ [Suspect]
     Indication: INSOMNIA
     Dates: start: 201304
  2. QUETIAPINE SANDOZ [Suspect]
     Indication: HEADACHE
     Dosage: 0.25 DF, UNK
  3. QUETIAPINE SANDOZ [Suspect]
     Indication: HALLUCINATION
     Dosage: 0.5 DF, UNK
  4. QUETIAPINE SANDOZ [Suspect]
     Indication: HALLUCINATION, AUDITORY
  5. QUETIAPINE SANDOZ [Suspect]
     Indication: OFF LABEL USE
  6. MIRTAZAPIN [Concomitant]
     Dates: start: 201304
  7. DEPAKINE [Concomitant]

REACTIONS (13)
  - Musculoskeletal stiffness [Unknown]
  - Tremor [Unknown]
  - Muscle twitching [Unknown]
  - Restlessness [Unknown]
  - Insomnia [Unknown]
  - Headache [Recovering/Resolving]
  - Drug withdrawal syndrome [Not Recovered/Not Resolved]
  - Fall [Unknown]
  - Vertigo [Unknown]
  - Disturbance in attention [Unknown]
  - Balance disorder [Unknown]
  - Drug administered to patient of inappropriate age [Unknown]
  - Fatigue [Unknown]
